FAERS Safety Report 19031459 (Version 1)
Quarter: 2021Q1

REPORT INFORMATION
  Report Type: Spontaneous
  Country: US (occurrence: US)
  Receive Date: 20210319
  Receipt Date: 20210319
  Transmission Date: 20210420
  Serious: Yes (Hospitalization, Other)
  Sender: FDA-Public Use
  Company Number: US-PACIRA-2021000229

PATIENT

DRUGS (10)
  1. GABAPENTIN. [Concomitant]
     Active Substance: GABAPENTIN
     Dosage: 300 MG TID; 7 DAYS OF SCHEDULED GABAPENTIN POSTOP
     Route: 065
  2. MORPHINE [Concomitant]
     Active Substance: MORPHINE
     Dosage: PCA (MORPHINE OR HYDROMORPHONE)
     Route: 065
  3. HYDROMORPHONE [Concomitant]
     Active Substance: HYDROMORPHONE
     Dosage: PCA (MORPHINE OR HYDROMORPHONE)
     Route: 065
  4. HYDROCODONE [Concomitant]
     Active Substance: HYDROCODONE
     Dosage: DOSE NOT PROVIDED, ORAL PAIN MEDICATIONS
     Route: 048
  5. SALINE [Concomitant]
     Active Substance: SODIUM CHLORIDE
     Dosage: 100?140 ML MIXED WITH 20 ML OF EXPAREL
     Route: 050
  6. LIDOCAINE. [Concomitant]
     Active Substance: LIDOCAINE
     Dosage: 100MG ON INDUCTION+INFUSED AT 1.5MG/KG/H PRIOR INCISION THROUGHOUT THE OPERATION, STOPPED PRIOR TAP
     Route: 040
  7. ACETAMINOPHEN. [Concomitant]
     Active Substance: ACETAMINOPHEN
     Dosage: 1000 MG Q6H; 7 DAYS OF SCHEDULED ACETAMINOPHEN POSTOP
     Route: 065
  8. OXYCODONE [Concomitant]
     Active Substance: OXYCODONE
     Dosage: DOSE NOT PROVIDED, ORAL PAIN MEDICATIONS
     Route: 048
  9. EXPAREL [Suspect]
     Active Substance: BUPIVACAINE
     Dosage: 20 ML (266 MG/13.3 MG/ML) WITH 100?140 ML OF SALINE 0.9%
     Route: 050
  10. ALVIMOPAN [Concomitant]
     Active Substance: ALVIMOPAN
     Dosage: PRE AND POSTOPERATIVE SCHEDULED (12 MG)
     Route: 048

REACTIONS (8)
  - Seroma [Unknown]
  - Haematoma [Unknown]
  - Hospitalisation [Unknown]
  - Urinary retention [Unknown]
  - Postoperative ileus [Unknown]
  - Wound complication [Unknown]
  - Acute kidney injury [Unknown]
  - Respiratory failure [Unknown]
